FAERS Safety Report 17295058 (Version 10)
Quarter: 2021Q2

REPORT INFORMATION
  Report Type: Report from Study
  Country: DE (occurrence: DE)
  Receive Date: 20200121
  Receipt Date: 20210625
  Transmission Date: 20210716
  Serious: Yes (Hospitalization)
  Sender: FDA-Public Use
  Company Number: NVSC2020DE013412

PATIENT
  Sex: Female
  Weight: 58 kg

DRUGS (22)
  1. COSENTYX [Suspect]
     Active Substance: SECUKINUMAB
     Dosage: 150 MG, Q4W
     Route: 065
     Dates: start: 20200304, end: 20200903
  2. COSENTYX [Suspect]
     Active Substance: SECUKINUMAB
     Dosage: 150 MG, ONCE/SINGLE
     Route: 058
     Dates: start: 20190312
  3. COSENTYX [Suspect]
     Active Substance: SECUKINUMAB
     Dosage: 150 MG, ONCE/SINGLE
     Route: 058
     Dates: start: 20190604
  4. IBUPROFEN. [Concomitant]
     Active Substance: IBUPROFEN
     Indication: PRODUCT USED FOR UNKNOWN INDICATION
     Dosage: 800 MG
     Route: 065
     Dates: start: 20181126, end: 20181215
  5. COSENTYX [Suspect]
     Active Substance: SECUKINUMAB
     Dosage: 150 MG, ONCE/SINGLE
     Route: 058
     Dates: start: 20190507
  6. COSENTYX [Suspect]
     Active Substance: SECUKINUMAB
     Dosage: 150 MG, ONCE/SINGLE
     Route: 058
     Dates: start: 20190702
  7. COSENTYX [Suspect]
     Active Substance: SECUKINUMAB
     Dosage: 150 MG, ONCE/SINGLE
     Route: 058
     Dates: start: 20190827
  8. COSENTYX [Suspect]
     Active Substance: SECUKINUMAB
     Indication: PSORIATIC ARTHROPATHY
     Dosage: 150 MG, ONCE/SINGLE
     Route: 058
     Dates: start: 20181214, end: 20191029
  9. COSENTYX [Suspect]
     Active Substance: SECUKINUMAB
     Indication: PSORIASIS
     Dosage: 150 MG, ONCE/SINGLE
     Route: 058
     Dates: start: 20181221
  10. COSENTYX [Suspect]
     Active Substance: SECUKINUMAB
     Dosage: 150 MG, ONCE/SINGLE
     Route: 058
     Dates: start: 20191029
  11. CELEBREX [Concomitant]
     Active Substance: CELECOXIB
     Indication: PSORIATIC ARTHROPATHY
     Dosage: 200 MG, ONCE IN MORNING (PRN)
     Route: 048
     Dates: start: 201810, end: 20190117
  12. COSENTYX [Suspect]
     Active Substance: SECUKINUMAB
     Dosage: 150 MG, ONCE/SINGLE
     Route: 058
     Dates: start: 20190104
  13. COSENTYX [Suspect]
     Active Substance: SECUKINUMAB
     Dosage: 150 MG, ONCE/SINGLE
     Route: 058
     Dates: start: 20190409
  14. COSENTYX [Suspect]
     Active Substance: SECUKINUMAB
     Dosage: 150 MG, ONCE/SINGLE
     Route: 058
     Dates: start: 20190730
  15. COSENTYX [Suspect]
     Active Substance: SECUKINUMAB
     Dosage: 150 MG, ONCE/SINGLE
     Route: 058
     Dates: start: 20190924
  16. COSENTYX [Suspect]
     Active Substance: SECUKINUMAB
     Dosage: 150 MG, Q4W
     Route: 058
     Dates: start: 20191217
  17. PANTOPRAZOL [Concomitant]
     Active Substance: PANTOPRAZOLE SODIUM
     Indication: PRODUCT USED FOR UNKNOWN INDICATION
     Dosage: 20 MG, UNKNOWN
     Route: 065
  18. COSENTYX [Suspect]
     Active Substance: SECUKINUMAB
     Dosage: 150 MG, ONCE/SINGLE
     Route: 058
     Dates: start: 20181228
  19. COSENTYX [Suspect]
     Active Substance: SECUKINUMAB
     Dosage: 150 MG, ONCE/SINGLE
     Route: 058
     Dates: start: 20190111
  20. COSENTYX [Suspect]
     Active Substance: SECUKINUMAB
     Dosage: 150 MG, ONCE/SINGLE
     Route: 058
     Dates: start: 20191119
  21. DEKRISTOL [Concomitant]
     Active Substance: CHOLECALCIFEROL
     Indication: PROPHYLAXIS
     Dosage: 20000 IU, Q2W
     Route: 048
     Dates: start: 20191105
  22. MONO?EMBOLEX [Concomitant]
     Active Substance: CERTOPARIN SODIUM
     Indication: PRODUCT USED FOR UNKNOWN INDICATION
     Dosage: 3000 IU, UNKNOWN
     Route: 065

REACTIONS (7)
  - Abdominal pain lower [Recovered/Resolved]
  - Immune system disorder [Unknown]
  - Escherichia pyelonephritis [Recovered/Resolved]
  - Ovarian cyst [Unknown]
  - C-reactive protein increased [Unknown]
  - Flank pain [Recovered/Resolved]
  - Infection [Unknown]

NARRATIVE: CASE EVENT DATE: 20200113
